FAERS Safety Report 17444805 (Version 1)
Quarter: 2020Q1

REPORT INFORMATION
  Report Type: Spontaneous
  Country: DE (occurrence: DE)
  Receive Date: 20200221
  Receipt Date: 20200221
  Transmission Date: 20200409
  Serious: Yes (Hospitalization)
  Sender: FDA-Public Use
  Company Number: DE-TEVA-2020-DE-1189090

PATIENT
  Age: 93 Year
  Sex: Female

DRUGS (11)
  1. ATORVASTATIN [Concomitant]
     Active Substance: ATORVASTATIN
     Dosage: 40 MILLIGRAM DAILY; 0-0-1-0
  2. CLOPIDOGREL [Suspect]
     Active Substance: CLOPIDOGREL BISULFATE
     Dosage: 75 MG, NK
  3. METOPROLOL. [Concomitant]
     Active Substance: METOPROLOL
     Dosage: 190 MILLIGRAM DAILY; 0.5-0-0.5-0
  4. CANDESARTAN. [Concomitant]
     Active Substance: CANDESARTAN
     Dosage: 32 MILLIGRAM DAILY; 1-0-1-0
  5. PANTOPRAZOL [Concomitant]
     Active Substance: PANTOPRAZOLE SODIUM
     Dosage: 40 MILLIGRAM DAILY; 1-0-0-0
  6. CORVATON RETARD 8MG [Concomitant]
     Active Substance: MOLSIDOMINE
     Dosage: 16 MILLIGRAM DAILY; 1-0-1-0
  7. NITROLINGUAL [Concomitant]
     Active Substance: NITROGLYCERIN
     Dosage: NK MG, IF NECESSARY
  8. TORASEMID [Concomitant]
     Active Substance: TORSEMIDE
     Dosage: 10 MILLIGRAM DAILY; 1-0-0-0
  9. ACETYLSALICYLSAURE [Suspect]
     Active Substance: ASPIRIN
     Dosage: 100 MILLIGRAM DAILY; 0-1-0-0
  10. AMLODIPIN [Concomitant]
     Active Substance: AMLODIPINE BESYLATE
     Dosage: 10 MILLIGRAM DAILY; 1-0-1-0
  11. PHENPROCOUMON [Suspect]
     Active Substance: PHENPROCOUMON
     Dosage: 3 MG, BY VALUE

REACTIONS (7)
  - Cough [Unknown]
  - Dyspnoea [Unknown]
  - Wheezing [Unknown]
  - Painful respiration [Unknown]
  - Musculoskeletal chest pain [Unknown]
  - Haemoptysis [Unknown]
  - Musculoskeletal pain [Unknown]
